FAERS Safety Report 6793237-8 (Version None)
Quarter: 2010Q2

REPORT INFORMATION
  Report Type: 
  Country: None (occurrence: None)
  Receive Date: 20100624
  Receipt Date: 20091016
  Transmission Date: 20101027
  Serious: Yes (Other)
  Sender: FDA-Public Use
  Company Number: US-MYLANLABS-2009S1015986

PATIENT
  Age: 53 Year
  Sex: Female
  Weight: 85.73 kg

DRUGS (5)
  1. CLOZAPINE [Suspect]
     Route: 048
     Dates: start: 20090802, end: 20090910
  2. COLACE [Concomitant]
  3. DULCOLAX [Concomitant]
  4. DEPAKOTE [Concomitant]
     Dosage: LIQUID
  5. COGENTIN [Concomitant]
     Route: 048

REACTIONS (1)
  - GRANULOCYTOPENIA [None]
